FAERS Safety Report 7265533-1 (Version None)
Quarter: 2011Q1

REPORT INFORMATION
  Report Type: 
  Country: None (occurrence: None)
  Receive Date: 20110131
  Receipt Date: 20101228
  Transmission Date: 20110831
  Serious: Yes (Death, Hospitalization)
  Sender: FDA-Public Use
  Company Number: FR-PFIZER INC-2007056725

PATIENT
  Age: 35 Year
  Sex: Male

DRUGS (8)
  1. SANDOSTATIN [Concomitant]
     Dosage: UNK
     Dates: start: 20070524, end: 20070530
  2. ZYVOX [Suspect]
     Dosage: 600 MG, 2X/DAY
     Route: 042
     Dates: start: 20070528, end: 20070605
  3. NEXIUM [Suspect]
     Indication: VARICES OESOPHAGEAL
     Dosage: 40 MG, 2X/DAY
     Route: 042
     Dates: start: 20070524
  4. LASIX [Concomitant]
     Dosage: UNK
     Dates: start: 20070530, end: 20070531
  5. VITAMIN B1 AND B6 [Concomitant]
     Dosage: UNK
     Dates: start: 20070524
  6. SOLU-MEDROL [Concomitant]
     Dosage: UNK
     Dates: start: 20070526
  7. LASIX [Concomitant]
     Dosage: UNK
     Dates: start: 20070604
  8. TAZOCILLINE [Suspect]
     Indication: OESOPHAGEAL VARICES HAEMORRHAGE
     Dosage: 4 G, 3X/DAY
     Route: 042
     Dates: start: 20070526, end: 20070605

REACTIONS (10)
  - LACTIC ACIDOSIS [None]
  - HEPATIC ENCEPHALOPATHY [None]
  - HYPOTENSION [None]
  - ACUTE RESPIRATORY DISTRESS SYNDROME [None]
  - CONDITION AGGRAVATED [None]
  - THROMBOCYTOPENIA [None]
  - OLIGURIA [None]
  - RENAL FAILURE [None]
  - DISSEMINATED INTRAVASCULAR COAGULATION [None]
  - MULTI-ORGAN FAILURE [None]
